FAERS Safety Report 6977914-1 (Version None)
Quarter: 2010Q3

REPORT INFORMATION
  Report Type: 
  Country: None (occurrence: None)
  Receive Date: 20100913
  Receipt Date: 20100902
  Transmission Date: 20110219
  Serious: Yes (Hospitalization)
  Sender: FDA-Public Use
  Company Number: US-US-EMD SERONO, INC.-7016676

PATIENT
  Sex: Female

DRUGS (2)
  1. REBIF [Suspect]
     Indication: MULTIPLE SCLEROSIS
     Route: 058
     Dates: start: 20070305
  2. UNSPECIFIED MEDICATION [Concomitant]
     Indication: CONVULSION

REACTIONS (5)
  - BONE DISORDER [None]
  - CONVULSION [None]
  - NERVE COMPRESSION [None]
  - TINNITUS [None]
  - VISUAL IMPAIRMENT [None]
